FAERS Safety Report 6280467-7 (Version None)
Quarter: 2009Q3

REPORT INFORMATION
  Report Type: 
  Country: None (occurrence: None)
  Receive Date: 20090724
  Receipt Date: 20080625
  Transmission Date: 20100115
  Serious: No
  Sender: FDA-Public Use
  Company Number: A0734956A

PATIENT
  Age: 56 Year
  Sex: Male

DRUGS (8)
  1. AVANDIA [Suspect]
     Dosage: 8MG PER DAY
     Route: 048
     Dates: start: 20060301, end: 20080624
  2. LASIX [Concomitant]
  3. METFORMIN HCL [Concomitant]
  4. SIMVASTATIN [Concomitant]
  5. GLYBURIDE [Concomitant]
  6. EFFEXOR [Concomitant]
  7. IBUPROFEN [Concomitant]
  8. CAPOTEN [Concomitant]

REACTIONS (5)
  - DYSPNOEA [None]
  - FATIGUE [None]
  - INSOMNIA [None]
  - OEDEMA PERIPHERAL [None]
  - WEIGHT INCREASED [None]
